FAERS Safety Report 19586474 (Version 2)
Quarter: 2021Q4

REPORT INFORMATION
  Report Type: Spontaneous
  Country: CA (occurrence: CA)
  Receive Date: 20210720
  Receipt Date: 20211104
  Transmission Date: 20220304
  Serious: Yes (Other)
  Sender: FDA-Public Use
  Company Number: CA-TAKEDA-2021TUS044385

PATIENT
  Age: 49 Year
  Sex: Female
  Weight: 66 kg

DRUGS (2)
  1. HUMAN IMMUNOGLOBULIN G [Suspect]
     Active Substance: HUMAN IMMUNOGLOBULIN G
     Indication: Product used for unknown indication
     Dosage: 25 GRAM
     Route: 042
  2. HUMAN IMMUNOGLOBULIN G [Suspect]
     Active Substance: HUMAN IMMUNOGLOBULIN G
     Dosage: 25 GRAM
     Route: 042
     Dates: start: 20200901, end: 20200901

REACTIONS (2)
  - Hypertension [Unknown]
  - Headache [Unknown]

NARRATIVE: CASE EVENT DATE: 20200901
